FAERS Safety Report 24387035 (Version 1)
Quarter: 2024Q4

REPORT INFORMATION
  Report Type: Spontaneous
  Country: US (occurrence: US)
  Receive Date: 20241002
  Receipt Date: 20241002
  Transmission Date: 20250115
  Serious: No
  Sender: JOHNSON AND JOHNSON
  Company Number: US-JNJFOC-20240947308

PATIENT
  Age: 1 Year
  Sex: Female

DRUGS (2)
  1. CHILDRENS ZYRTEC [Suspect]
     Active Substance: CETIRIZINE HYDROCHLORIDE
     Indication: Rash erythematous
     Route: 065
     Dates: start: 202407
  2. ALGLUCOSIDASE ALFA [Concomitant]
     Active Substance: ALGLUCOSIDASE ALFA
     Indication: Glycogen storage disease type II
     Dosage: SOLUTION FOR INFUSION(50MG) AT A DOSE OF 325MG EVERY WEEK(IN 100ML NORMAL SALINE OVER 5 HOURS VIA PU
     Route: 042
     Dates: start: 20230825

REACTIONS (3)
  - Somnolence [Unknown]
  - Product use in unapproved indication [Unknown]
  - Therapeutic response unexpected [Unknown]

NARRATIVE: CASE EVENT DATE: 20240701
